FAERS Safety Report 15556303 (Version 1)
Quarter: 2018Q4

REPORT INFORMATION
  Report Type: Spontaneous
  Country: PT (occurrence: PT)
  Receive Date: 20181026
  Receipt Date: 20181026
  Transmission Date: 20190205
  Serious: Yes (Death, Hospitalization)
  Sender: FDA-Public Use
  Company Number: PT-IMPAX LABORATORIES, INC-2018-IPXL-03460

PATIENT
  Age: 55 Year
  Sex: Male

DRUGS (28)
  1. MIRTAZAPINE ODT [Suspect]
     Active Substance: MIRTAZAPINE
     Indication: PRODUCT USE IN UNAPPROVED INDICATION
  2. BACLOFEN. [Suspect]
     Active Substance: BACLOFEN
     Indication: CENTRAL PAIN SYNDROME
  3. GABAPENTIN. [Suspect]
     Active Substance: GABAPENTIN
     Dosage: 1600 MG, DAILY
     Route: 065
     Dates: start: 200202
  4. GABAPENTIN. [Suspect]
     Active Substance: GABAPENTIN
     Dosage: 1200 MG, DAILY
     Route: 065
  5. TENOFOVIR [Suspect]
     Active Substance: TENOFOVIR
     Indication: ACQUIRED IMMUNODEFICIENCY SYNDROME
     Dosage: UNK
     Route: 065
     Dates: start: 2003
  6. FOLINIC ACID [Suspect]
     Active Substance: LEUCOVORIN
     Indication: CEREBRAL TOXOPLASMOSIS
     Dosage: UNK
     Route: 065
     Dates: start: 200202
  7. GABAPENTIN. [Suspect]
     Active Substance: GABAPENTIN
     Dosage: 300 MG, 2 /DAY
     Route: 065
  8. AMITRIPTYLINE [Suspect]
     Active Substance: AMITRIPTYLINE
     Indication: CENTRAL PAIN SYNDROME
     Dosage: 50 MG, DAILY
     Route: 065
     Dates: start: 200202, end: 200709
  9. AMITRIPTYLINE [Suspect]
     Active Substance: AMITRIPTYLINE
     Dosage: 25 MG, DAILY
     Route: 065
  10. TRAMADOL LP [Suspect]
     Active Substance: TRAMADOL HYDROCHLORIDE
     Indication: CENTRAL PAIN SYNDROME
     Dosage: 100 MG, 2 /DAY
     Route: 065
     Dates: start: 200202, end: 200709
  11. TRAMADOL LP [Suspect]
     Active Substance: TRAMADOL HYDROCHLORIDE
     Dosage: 200 MG, 2 /DAY
     Route: 065
  12. CLONAZEPAM. [Suspect]
     Active Substance: CLONAZEPAM
     Indication: PAIN
     Dosage: 0.25 MG, 2 /DAY
     Route: 065
  13. GABAPENTIN. [Suspect]
     Active Substance: GABAPENTIN
     Dosage: 800 MG, DAILY (DOSE REDUCED)
     Route: 065
     Dates: start: 200309
  14. PARACETAMOL [Suspect]
     Active Substance: ACETAMINOPHEN
     Indication: PRODUCT USED FOR UNKNOWN INDICATION
     Dosage: 1 G, 3 /DAY
     Dates: start: 200202
  15. LOPINAVIR/RITONAVIR [Suspect]
     Active Substance: LOPINAVIR\RITONAVIR
     Indication: ACQUIRED IMMUNODEFICIENCY SYNDROME
     Dosage: UNK
     Route: 065
     Dates: start: 200202
  16. GABAPENTIN. [Suspect]
     Active Substance: GABAPENTIN
     Indication: CENTRAL PAIN SYNDROME
     Dosage: 400 MG, 3 /DAY
     Route: 065
     Dates: start: 200202, end: 200202
  17. BACLOFEN. [Suspect]
     Active Substance: BACLOFEN
     Indication: MUSCLE SPASTICITY
     Dosage: 10 MG, DAILY
     Route: 065
     Dates: start: 2007
  18. BACLOFEN. [Suspect]
     Active Substance: BACLOFEN
     Indication: MUSCLE RIGIDITY
     Dosage: 20 MG, DAILY
     Route: 065
  19. STAVUDINE. [Suspect]
     Active Substance: STAVUDINE
     Indication: ACQUIRED IMMUNODEFICIENCY SYNDROME
     Dosage: UNK
     Route: 065
     Dates: start: 200202, end: 2003
  20. SULFADIAZINE. [Suspect]
     Active Substance: SULFADIAZINE
     Indication: CEREBRAL TOXOPLASMOSIS
     Dosage: UNK
     Route: 065
     Dates: start: 200202
  21. TRAMADOL LP [Suspect]
     Active Substance: TRAMADOL HYDROCHLORIDE
     Dosage: 200 MG, 2 /DAY
     Route: 065
     Dates: end: 200709
  22. LAMIVUDINE. [Suspect]
     Active Substance: LAMIVUDINE
     Indication: ACQUIRED IMMUNODEFICIENCY SYNDROME
     Dosage: UNK
     Route: 065
     Dates: start: 200202
  23. PYRIMETHAMINE [Suspect]
     Active Substance: PYRIMETHAMINE
     Indication: CEREBRAL TOXOPLASMOSIS
     Dosage: UNK
     Route: 065
     Dates: start: 200202
  24. GABAPENTIN. [Suspect]
     Active Substance: GABAPENTIN
     Dosage: 2400 MG, DAILY
     Route: 065
     Dates: start: 200301
  25. BUPRENORPHINE. [Suspect]
     Active Substance: BUPRENORPHINE
     Indication: PRODUCT USED FOR UNKNOWN INDICATION
     Dosage: 35 MCG/H
     Route: 062
  26. MIRTAZAPINE ODT [Suspect]
     Active Substance: MIRTAZAPINE
     Indication: CENTRAL PAIN SYNDROME
     Dosage: 15 MG, 1 /DAY
     Route: 065
  27. BACLOFEN. [Suspect]
     Active Substance: BACLOFEN
     Indication: PRODUCT USE IN UNAPPROVED INDICATION
  28. VENLAFAXINE [Suspect]
     Active Substance: VENLAFAXINE HYDROCHLORIDE
     Indication: PRODUCT USED FOR UNKNOWN INDICATION
     Dosage: 75 MG, DAILY
     Route: 065

REACTIONS (8)
  - Pancytopenia [Fatal]
  - Encephalopathy [Fatal]
  - Hepatic failure [Fatal]
  - Portal hypertension [Fatal]
  - Ascites [Fatal]
  - Product use in unapproved indication [Unknown]
  - Upper gastrointestinal haemorrhage [Fatal]
  - Coagulopathy [Fatal]
